FAERS Safety Report 19572759 (Version 4)
Quarter: 2021Q3

REPORT INFORMATION
  Report Type: Spontaneous
  Country: CA (occurrence: CA)
  Receive Date: 20210716
  Receipt Date: 20210930
  Transmission Date: 20211014
  Serious: Yes (Hospitalization)
  Sender: FDA-Public Use
  Company Number: CA-PFIZER INC-2020449241

PATIENT
  Age: 61 Year
  Sex: Male
  Weight: 65 kg

DRUGS (13)
  1. ZIRABEV [Suspect]
     Active Substance: BEVACIZUMAB-BVZR
     Dosage: 1000 MG EVERY 3 WEEKS
     Route: 042
     Dates: start: 20201222
  2. LOMUSTINE. [Concomitant]
     Active Substance: LOMUSTINE
     Indication: PREMEDICATION
     Dosage: UNK
  3. ZIRABEV [Suspect]
     Active Substance: BEVACIZUMAB-BVZR
     Dosage: 1000 MG EVERY 3 WEEKS
     Route: 042
     Dates: start: 20201222
  4. ZIRABEV [Suspect]
     Active Substance: BEVACIZUMAB-BVZR
     Dosage: 1000 MG EVERY 3 WEEKS
     Route: 042
     Dates: start: 20210223
  5. ZIRABEV [Suspect]
     Active Substance: BEVACIZUMAB-BVZR
     Dosage: 1000 MG EVERY 3 WEEKS
     Route: 042
     Dates: start: 20210202
  6. ZIRABEV [Suspect]
     Active Substance: BEVACIZUMAB-BVZR
     Indication: GLIOBLASTOMA
     Dosage: 1000 MG EVERY 3 WEEKS
     Route: 042
     Dates: start: 20201124
  7. DEXAMETHASONE. [Concomitant]
     Active Substance: DEXAMETHASONE
     Indication: PREMEDICATION
     Dosage: 10 MG
     Route: 048
     Dates: start: 20210615
  8. ZIRABEV [Suspect]
     Active Substance: BEVACIZUMAB-BVZR
     Dosage: 1000 MG EVERY 3 WEEKS
     Route: 042
     Dates: start: 20201203
  9. ZIRABEV [Suspect]
     Active Substance: BEVACIZUMAB-BVZR
     Dosage: 1000 MG EVERY 3 WEEKS (RIGHT ANTECUBITAL)
     Route: 042
     Dates: start: 20210316
  10. ZIRABEV [Suspect]
     Active Substance: BEVACIZUMAB-BVZR
     Dosage: 1000 MG EVERY 3 WEEKS (RIGHT ANTECUBITAL)
     Route: 042
     Dates: start: 20210316
  11. ZIRABEV [Suspect]
     Active Substance: BEVACIZUMAB-BVZR
     Dosage: 1000 MG EVERY 3 WEEKS
     Route: 042
     Dates: start: 20210202
  12. ZIRABEV [Suspect]
     Active Substance: BEVACIZUMAB-BVZR
     Dosage: 1000 MG EVERY 3 WEEKS (RIGHT HAND)
     Route: 042
     Dates: start: 20210629
  13. ZIRABEV [Suspect]
     Active Substance: BEVACIZUMAB-BVZR
     Dosage: 1000 MG EVERY 3 WEEKS (RIGHT HAND)
     Route: 042
     Dates: start: 20210831

REACTIONS (11)
  - Off label use [Unknown]
  - Product dose omission issue [Unknown]
  - Blood pressure diastolic increased [Unknown]
  - Product use issue [Unknown]
  - Blood pressure systolic increased [Unknown]
  - Personality change [Unknown]
  - Heart rate decreased [Unknown]
  - Blood pressure diastolic decreased [Unknown]
  - Agitation [Recovering/Resolving]
  - Seizure [Unknown]
  - Neoplasm progression [Unknown]

NARRATIVE: CASE EVENT DATE: 2021
